FAERS Safety Report 16040290 (Version 2)
Quarter: 2019Q2

REPORT INFORMATION
  Report Type: Spontaneous
  Country: GB (occurrence: GB)
  Receive Date: 20190306
  Receipt Date: 20190521
  Transmission Date: 20190711
  Serious: Yes (Other)
  Sender: FDA-Public Use
  Company Number: GB-PFIZER INC-2019090947

PATIENT
  Age: 88 Year
  Sex: Female

DRUGS (1)
  1. LORAZEPAM. [Suspect]
     Active Substance: LORAZEPAM
     Dosage: 2 MG, UNK
     Dates: start: 20171012

REACTIONS (12)
  - Pneumonia aspiration [Unknown]
  - Somnolence [Unknown]
  - Hypoxia [Unknown]
  - Neutrophil count increased [Unknown]
  - Chest discomfort [Unknown]
  - Contraindicated product prescribed [Unknown]
  - Delirium [Unknown]
  - White blood cell count increased [Unknown]
  - Confusional state [Unknown]
  - Tachycardia [Unknown]
  - Vomiting [Unknown]
  - C-reactive protein increased [Unknown]

NARRATIVE: CASE EVENT DATE: 20171012
